FAERS Safety Report 19600898 (Version 1)
Quarter: 2021Q3

REPORT INFORMATION
  Report Type: Spontaneous
  Country: NL (occurrence: NL)
  Receive Date: 20210723
  Receipt Date: 20210723
  Transmission Date: 20211014
  Serious: Yes (Hospitalization)
  Sender: FDA-Public Use
  Company Number: NL-ACCORD-232655

PATIENT
  Age: 73 Year
  Sex: Female
  Weight: 50.4 kg

DRUGS (9)
  1. NITROGLYCERIN. [Concomitant]
     Active Substance: NITROGLYCERIN
     Dosage: SPRAY SUBLING. 0.4 MG/DO / NITROLINGUAL OROMUCOSAL SPRAY FLAC 250 DO, SPRAY, 0.4 MG/DOSE
  2. PANTOPRAZOLE [Concomitant]
     Active Substance: PANTOPRAZOLE
     Dosage: TABLET MSR 40MG, GASTRO?RESISTANT TABLET, 40 MG (MILLIGRAMS)
  3. TICAGRELOR. [Concomitant]
     Active Substance: TICAGRELOR
     Dosage: TABLET, 90 MG (MILLIGRAM), TABLET 90MG
  4. METOPROLOL. [Concomitant]
     Active Substance: METOPROLOL
     Dosage: TABLET MGA 50MG (SUCCINATE), MODIFIED?RELEASE TABLET, 50 MG (MILLIGRAMS)
  5. ATORVASTATIN/ATORVASTATIN CALCIUM [Suspect]
     Active Substance: ATORVASTATIN CALCIUM
     Indication: ACUTE MYOCARDIAL INFARCTION
     Dosage: TABLET, 40 MG (MILLIGRAM), 2 DD 40 MG, TABLET 40MG
     Dates: start: 202103
  6. PERINDOPRIL [Concomitant]
     Active Substance: PERINDOPRIL
     Dosage: TABLET 2 MG (ERBUMINE), TABLET, 2 MG (MILLIGRAM)
  7. ATORVASTATIN/ATORVASTATIN CALCIUM [Interacting]
     Active Substance: ATORVASTATIN CALCIUM
     Indication: ACUTE MYOCARDIAL INFARCTION
     Dosage: WHICH WAS HALVED BY THE GP ON 10?6?21
     Dates: start: 20210610
  8. METRONIDAZOLE. [Interacting]
     Active Substance: METRONIDAZOLE
     Indication: DIENTAMOEBA INFECTION
     Dosage: TABLET 500 MG, 3X PER DAY 1 PIECE
     Dates: start: 20210604, end: 20210607
  9. ACETYLSALICYLIC ACID [Concomitant]
     Active Substance: ASPIRIN
     Dosage: TABLET, 80 MG (MILLIGRAM), TABLET 80MG

REACTIONS (3)
  - Acute kidney injury [Recovering/Resolving]
  - Rhabdomyolysis [Recovering/Resolving]
  - Drug interaction [Unknown]

NARRATIVE: CASE EVENT DATE: 20210605
